FAERS Safety Report 20210728 (Version 1)
Quarter: 2021Q4

REPORT INFORMATION
  Report Type: Spontaneous
  Country: US (occurrence: US)
  Receive Date: 20211221
  Receipt Date: 20211221
  Transmission Date: 20220303
  Serious: Yes (Other)
  Sender: FDA-Public Use
  Company Number: US-GLAXOSMITHKLINE-US2021GSK257075

PATIENT
  Sex: Female

DRUGS (16)
  1. RANITIDINE [Suspect]
     Active Substance: RANITIDINE
     Indication: Gastrooesophageal reflux disease
     Dosage: 150 MG, QD, 1 PILL DAILY
     Route: 065
     Dates: start: 200401, end: 202004
  2. RANITIDINE [Suspect]
     Active Substance: RANITIDINE
     Indication: Abdominal discomfort
  3. RANITIDINE [Suspect]
     Active Substance: RANITIDINE
     Indication: Volvulus
  4. RANITIDINE [Suspect]
     Active Substance: RANITIDINE
     Indication: Volvulus repair
  5. ZANTAC [Suspect]
     Active Substance: RANITIDINE HYDROCHLORIDE
     Indication: Gastrooesophageal reflux disease
     Dosage: 150 MG, QD, 1 PILL DAILY
     Route: 065
     Dates: start: 200401, end: 202004
  6. ZANTAC [Suspect]
     Active Substance: RANITIDINE HYDROCHLORIDE
     Indication: Abdominal discomfort
  7. ZANTAC [Suspect]
     Active Substance: RANITIDINE HYDROCHLORIDE
     Indication: Volvulus
  8. ZANTAC [Suspect]
     Active Substance: RANITIDINE HYDROCHLORIDE
     Indication: Volvulus repair
  9. RANITIDINE [Suspect]
     Active Substance: RANITIDINE
     Indication: Gastrooesophageal reflux disease
     Dosage: 150 MG, QD, 1 PILL DAILY
     Route: 065
     Dates: start: 200401, end: 202004
  10. RANITIDINE [Suspect]
     Active Substance: RANITIDINE
     Indication: Abdominal discomfort
  11. RANITIDINE [Suspect]
     Active Substance: RANITIDINE
     Indication: Volvulus
  12. RANITIDINE [Suspect]
     Active Substance: RANITIDINE
     Indication: Volvulus repair
  13. RANITIDINE [Suspect]
     Active Substance: RANITIDINE
     Indication: Gastrooesophageal reflux disease
     Dosage: 150 MG, QD, 1 PILL DAILY
     Route: 065
     Dates: start: 200401, end: 202004
  14. RANITIDINE [Suspect]
     Active Substance: RANITIDINE
     Indication: Abdominal discomfort
  15. RANITIDINE [Suspect]
     Active Substance: RANITIDINE
     Indication: Volvulus
  16. RANITIDINE [Suspect]
     Active Substance: RANITIDINE
     Indication: Volvulus repair

REACTIONS (5)
  - Breast cancer [Unknown]
  - Skin cancer [Unknown]
  - Anxiety [Unknown]
  - Emotional distress [Unknown]
  - Depression [Unknown]
